FAERS Safety Report 8142398-7 (Version None)
Quarter: 2012Q1

REPORT INFORMATION
  Report Type: 
  Country: None (occurrence: None)
  Receive Date: 20120216
  Receipt Date: 20120209
  Transmission Date: 20120608
  Serious: Yes (Hospitalization)
  Sender: FDA-Public Use
  Company Number: AU-BRISTOL-MYERS SQUIBB COMPANY-16375727

PATIENT
  Age: 66 Year
  Sex: Male

DRUGS (13)
  1. PERINDOPRIL ERBUMINE [Concomitant]
     Dates: start: 20101029
  2. METOCLOPRAMIDE [Concomitant]
     Dates: start: 20111103
  3. CARBOPLATIN [Suspect]
     Indication: NEOPLASM
     Dosage: INTERRUPTED ON 30JAN12,CYCLE 2
     Route: 042
     Dates: start: 20111102
  4. ENOXAPARIN SODIUM [Concomitant]
     Dates: start: 20120131, end: 20120204
  5. CIPROFLOXACIN [Concomitant]
     Dates: start: 20111213
  6. MAGMIN [Concomitant]
     Dates: start: 20120130, end: 20120131
  7. BMS754807 [Suspect]
     Indication: NEOPLASM
     Dosage: INTERRUPTED ON 04JAN12,CYL 2 22DEC11-4JAN12(100 MG) ORAL 30JAN12-30JAN12 IV(565 MG)ALSO(339 MG)
     Route: 048
     Dates: start: 20111103
  8. BUPRENORPHINE [Concomitant]
     Dosage: PATCH
     Dates: start: 20110907
  9. LIPITOR [Concomitant]
     Dates: start: 20101101
  10. NEXIUM [Concomitant]
     Dates: start: 20111116
  11. PACLITAXEL [Suspect]
     Indication: NEOPLASM
     Dosage: INTERRUPTED ON 30JAN12,CYCLE 2
     Route: 042
     Dates: start: 20111102
  12. ASPIRIN [Concomitant]
     Dates: start: 20101101
  13. LORAZEPAM [Concomitant]
     Dates: start: 20111116

REACTIONS (1)
  - ACUTE CORONARY SYNDROME [None]
